FAERS Safety Report 4420685-3 (Version None)
Quarter: 2004Q3

REPORT INFORMATION
  Report Type: 
  Country: None (occurrence: None)
  Receive Date: 20040809
  Receipt Date: 20040423
  Transmission Date: 20050211
  Serious: No
  Sender: FDA-Public Use
  Company Number: US-GLAXOSMITHKLINE-A0508335A

PATIENT
  Sex: Female

DRUGS (8)
  1. PAXIL [Suspect]
     Dosage: 20MG PER DAY
     Route: 048
     Dates: start: 20040409
  2. XANAX [Concomitant]
  3. LESCOL [Concomitant]
  4. PREMARIN [Concomitant]
  5. NEXIUM [Concomitant]
  6. DITROPAN [Concomitant]
  7. ESTROGEN [Concomitant]
  8. VIOXX [Concomitant]

REACTIONS (1)
  - OEDEMA PERIPHERAL [None]
